FAERS Safety Report 13481315 (Version 2)
Quarter: 2017Q3

REPORT INFORMATION
  Report Type: Report from Study
  Country: US (occurrence: US)
  Receive Date: 20170424
  Receipt Date: 20170728
  Transmission Date: 20171127
  Serious: No
  Sender: FDA-Public Use
  Company Number: US-AMGEN-USASL2017027195

PATIENT
  Age: 66 Year
  Sex: Male
  Weight: 95.24 kg

DRUGS (3)
  1. REPATHA [Suspect]
     Active Substance: EVOLOCUMAB
     Indication: HYPERCHOLESTEROLAEMIA
     Dosage: 140 MG, Q2WK
     Route: 058
     Dates: start: 20161208
  2. NITROGLYCERIN. [Concomitant]
     Active Substance: NITROGLYCERIN
  3. REPATHA [Suspect]
     Active Substance: EVOLOCUMAB
     Indication: LOW DENSITY LIPOPROTEIN DECREASED

REACTIONS (14)
  - Nasopharyngitis [Unknown]
  - Gastrointestinal disorder [Unknown]
  - Vomiting [Unknown]
  - Wheezing [Unknown]
  - Faeces discoloured [Recovering/Resolving]
  - Abdominal pain [Unknown]
  - Dyspnoea [Unknown]
  - Injection site mass [Unknown]
  - Headache [Unknown]
  - Chest pain [Unknown]
  - Abdominal discomfort [Unknown]
  - Dyspepsia [Unknown]
  - Limb discomfort [Unknown]
  - Musculoskeletal discomfort [Unknown]

NARRATIVE: CASE EVENT DATE: 20170320
